FAERS Safety Report 8183104-X (Version None)
Quarter: 2012Q1

REPORT INFORMATION
  Report Type: 
  Country: None (occurrence: None)
  Receive Date: 20120126
  Receipt Date: 20111207
  Transmission Date: 20120608
  Serious: Yes (Other)
  Sender: FDA-Public Use
  Company Number: PHEH2011US011118

PATIENT
  Sex: Female

DRUGS (10)
  1. CALCIUM CARBONATE [Concomitant]
  2. MIRALAX [Concomitant]
  3. VERSED [Concomitant]
  4. BUSPAR [Concomitant]
  5. DIASTAT [Concomitant]
  6. AFINITOR [Suspect]
     Indication: TUBEROUS SCLEROSIS
     Dosage: 5 MG, DAILY, ORAL, 5 MG, DAILY, ORAL
     Route: 048
     Dates: start: 20110613, end: 20111030
  7. AFINITOR [Suspect]
     Indication: TUBEROUS SCLEROSIS
     Dosage: 5 MG, DAILY, ORAL, 5 MG, DAILY, ORAL
     Route: 048
     Dates: start: 20111125
  8. ZINC (ZINC) [Concomitant]
  9. LEXAPRO [Concomitant]
  10. MULTIVITAMIN ^LAPPE^ (VITAMINS NOS) [Concomitant]

REACTIONS (2)
  - PNEUMONIA [None]
  - PYREXIA [None]
